FAERS Safety Report 6114413-3 (Version None)
Quarter: 2009Q1

REPORT INFORMATION
  Report Type: 
  Country: None (occurrence: None)
  Receive Date: 20090313
  Receipt Date: 20090309
  Transmission Date: 20090719
  Serious: Yes (Death, Hospitalization)
  Sender: FDA-Public Use
  Company Number: CN-JNJFOC-20090206248

PATIENT
  Age: 59 Year
  Sex: Male

DRUGS (2)
  1. ULTRACET [Suspect]
     Indication: CANCER PAIN
     Route: 048
  2. TRADITIONAL CHINESE MEDICINE [Concomitant]
     Indication: NEOPLASM MALIGNANT

REACTIONS (3)
  - DYSURIA [None]
  - GAIT DISTURBANCE [None]
  - MUSCULAR WEAKNESS [None]
